FAERS Safety Report 8531755 (Version 3)
Quarter: 2013Q3

REPORT INFORMATION
  Report Type: Spontaneous
  Country: US (occurrence: US)
  Receive Date: 20120426
  Receipt Date: 20130822
  Transmission Date: 20140515
  Serious: Yes (Hospitalization)
  Sender: FDA-Public Use
  Company Number: US-BAYER-2012-038152

PATIENT
  Age: 27 Year
  Sex: Female
  Weight: 58.5 kg

DRUGS (11)
  1. BEYAZ [Suspect]
     Indication: CONTRACEPTION
     Dosage: UNK
     Route: 048
     Dates: start: 201201, end: 201203
  2. GAMUNEX [Concomitant]
     Dosage: 30 G, IV PUSH, ONCE EVERY 4 WEEKS
     Route: 042
  3. ZOLOFT [Concomitant]
     Dosage: 50 MG, DAILY
     Route: 048
  4. FLUTICASONE [Concomitant]
     Dosage: 2 TIMES A DAY
     Route: 048
  5. MULTIVITAMINS [Concomitant]
     Dosage: 1 TABLET DAILY
     Route: 048
  6. ZYRTEC [Concomitant]
     Dosage: 10 MG, DAILY
     Route: 048
  7. SYMBICORT [Concomitant]
     Dosage: 10 MG, DAILY
     Route: 048
  8. SINGULAIR [Concomitant]
     Dosage: 10 MG, DAILY
     Route: 048
  9. SEROQUEL [Concomitant]
     Dosage: 50 MG, DAILY
     Route: 048
  10. FIORICET [Concomitant]
     Dosage: AS NEEDED
     Route: 048
  11. OMEPRAZOLE [Concomitant]
     Dosage: DAILY
     Route: 048

REACTIONS (1)
  - Pulmonary embolism [None]
